FAERS Safety Report 8332774-1 (Version None)
Quarter: 2012Q2

REPORT INFORMATION
  Report Type: 
  Country: None (occurrence: None)
  Receive Date: 20120503
  Receipt Date: 20120425
  Transmission Date: 20120825
  Serious: Yes (Other)
  Sender: FDA-Public Use
  Company Number: JP-VERTEX PHARMACEUTICALS INC.-AE-2012-003433

PATIENT
  Age: 65 Year
  Sex: Female

DRUGS (10)
  1. PEGINTERFERON ALFA-2B [Concomitant]
     Indication: HEPATITIS C
     Route: 051
     Dates: start: 20120117, end: 20120410
  2. RIBAVIRIN [Concomitant]
     Route: 048
     Dates: start: 20120207, end: 20120410
  3. LOXOPROFEN [Concomitant]
     Route: 048
     Dates: start: 20120117
  4. TELAVIC (TELAPREVIR) [Suspect]
     Indication: HEPATITIS C
     Route: 048
     Dates: start: 20120117, end: 20120213
  5. RIBAVIRIN [Concomitant]
     Indication: HEPATITIS C
     Route: 048
     Dates: start: 20120117, end: 20120206
  6. ALLOPURINOL [Concomitant]
     Route: 048
  7. TELAVIC (TELAPREVIR) [Suspect]
     Route: 048
     Dates: start: 20120214, end: 20120410
  8. LEVOTHYROXINE SODIUM [Concomitant]
     Route: 048
  9. DOMPERIDONE [Concomitant]
     Route: 048
     Dates: start: 20120117
  10. CANDESARTAN CILEXETIL [Concomitant]
     Route: 048
     Dates: end: 20120213

REACTIONS (8)
  - HYPOKALAEMIA [None]
  - ERYTHEMA [None]
  - HYPERURICAEMIA [None]
  - PAPULE [None]
  - BLOOD CREATININE INCREASED [None]
  - OEDEMA [None]
  - NAUSEA [None]
  - HYPOTHYROIDISM [None]
